FAERS Safety Report 17267587 (Version 16)
Quarter: 2025Q3

REPORT INFORMATION
  Report Type: Spontaneous
  Country: US (occurrence: US)
  Receive Date: 20200114
  Receipt Date: 20250724
  Transmission Date: 20251020
  Serious: No
  Sender: BIOGEN
  Company Number: US-BIOGEN-2018BI00664924

PATIENT
  Sex: Female

DRUGS (3)
  1. TYSABRI [Suspect]
     Active Substance: NATALIZUMAB
     Indication: Multiple sclerosis
     Dosage: INFUSED OVER ONE HOUR
     Route: 050
     Dates: start: 20080414
  2. TYSABRI [Suspect]
     Active Substance: NATALIZUMAB
     Route: 050
  3. TYSABRI [Suspect]
     Active Substance: NATALIZUMAB
     Dosage: INFUSED OVER 1 HOUR
     Route: 050
     Dates: start: 2019, end: 20250612

REACTIONS (5)
  - Prescribed underdose [Recovered/Resolved]
  - Incorrect drug administration rate [Recovered/Resolved]
  - Impatience [Unknown]
  - Nervousness [Unknown]
  - Fear [Unknown]

NARRATIVE: CASE EVENT DATE: 20190101
